FAERS Safety Report 17285653 (Version 3)
Quarter: 2020Q1

REPORT INFORMATION
  Report Type: Spontaneous
  Country: US (occurrence: US)
  Receive Date: 20200117
  Receipt Date: 20200128
  Transmission Date: 20200409
  Serious: No
  Sender: FDA-Public Use
  Company Number: US-UNITED THERAPEUTICS-UNT-2020-000504

PATIENT
  Age: 54 Year
  Sex: Female

DRUGS (4)
  1. ORENITRAM [Suspect]
     Active Substance: TREPROSTINIL
     Dosage: 0.325 MG, TID
     Route: 048
     Dates: start: 20191226
  2. ORENITRAM [Suspect]
     Active Substance: TREPROSTINIL
     Dosage: 0.50 MG, TID
     Route: 048
  3. ORENITRAM [Suspect]
     Active Substance: TREPROSTINIL
     Indication: PULMONARY ARTERIAL HYPERTENSION
     Dosage: 0.375 MG, TID
     Route: 048
     Dates: start: 20191225
  4. POTASSIUM [Concomitant]
     Active Substance: POTASSIUM
     Indication: PRODUCT USED FOR UNKNOWN INDICATION
     Dosage: UNK
     Route: 048

REACTIONS (5)
  - Dizziness [Unknown]
  - Headache [Recovered/Resolved]
  - Nausea [Unknown]
  - Abdominal distension [Recovered/Resolved]
  - Vomiting [Recovered/Resolved]

NARRATIVE: CASE EVENT DATE: 20200108
